FAERS Safety Report 21832257 (Version 2)
Quarter: 2023Q1

REPORT INFORMATION
  Report Type: Report from Study
  Country: DE (occurrence: DE)
  Receive Date: 20230106
  Receipt Date: 20230118
  Transmission Date: 20230417
  Serious: Yes (Hospitalization, Other)
  Sender: FDA-Public Use
  Company Number: DE-002147023-NVSC2022DE254204

PATIENT
  Sex: Female
  Weight: 47 kg

DRUGS (4)
  1. LETROZOLE [Suspect]
     Active Substance: LETROZOLE
     Indication: Breast cancer metastatic
     Dosage: 2.5 MG, QD
     Route: 048
     Dates: start: 20200115
  2. KISQALI [Suspect]
     Active Substance: RIBOCICLIB
     Indication: Breast cancer metastatic
     Dosage: 400MGQD REGIMEN 21D INTAKE, 7D PAUSE
     Route: 048
     Dates: start: 20220302
  3. KISQALI [Suspect]
     Active Substance: RIBOCICLIB
     Dosage: 600MGQD REGIMEN 21D INTAKE, 7D PAUSE
     Route: 048
     Dates: start: 20200115, end: 20200211
  4. KISQALI [Suspect]
     Active Substance: RIBOCICLIB
     Dosage: 400MGQD REGIMEN 21D INTAKE, 7D PAUSE
     Route: 048
     Dates: start: 20200212, end: 20220210

REACTIONS (3)
  - Thrombocytopenia [Recovered/Resolved]
  - Staphylococcal bacteraemia [Recovered/Resolved]
  - Leukopenia [Recovered/Resolved]

NARRATIVE: CASE EVENT DATE: 20220210
